FAERS Safety Report 24015271 (Version 1)
Quarter: 2024Q2

REPORT INFORMATION
  Report Type: Spontaneous
  Country: US (occurrence: None)
  Receive Date: 20240626
  Receipt Date: 20240626
  Transmission Date: 20240716
  Serious: Yes (Hospitalization)
  Sender: FDA-Public Use
  Company Number: None

PATIENT
  Age: 55 Year
  Sex: Female
  Weight: 80.6 kg

DRUGS (16)
  1. CARBOPLATIN [Suspect]
     Active Substance: CARBOPLATIN
     Dates: end: 20240522
  2. PACLITAXEL [Suspect]
     Active Substance: PACLITAXEL
     Dates: end: 20240522
  3. ALOXI [Concomitant]
     Active Substance: PALONOSETRON HYDROCHLORIDE
  4. APREITANT [Concomitant]
  5. ASPIRIN [Concomitant]
     Active Substance: ASPIRIN
  6. CALCIUM CARBONATE [Concomitant]
     Active Substance: CALCIUM CARBONATE
  7. CLARITIN [Concomitant]
     Active Substance: LORATADINE
  8. DEXAMETHASONE [Concomitant]
     Active Substance: DEXAMETHASONE
  9. DULCOLAX NOS [Concomitant]
     Active Substance: BISACODYL\BISACODYL OR DOCUSATE SODIUM\DOCUSATE SODIUM
  10. FISH OIL [Concomitant]
     Active Substance: FISH OIL
  11. LAMITCAL [Concomitant]
  12. MIRALAX [Concomitant]
     Active Substance: POLYETHYLENE GLYCOL 3350
  13. NEULASTA [Concomitant]
     Active Substance: PEGFILGRASTIM
  14. PEPCID [Concomitant]
     Active Substance: FAMOTIDINE
  15. TYLENOL [Concomitant]
     Active Substance: ACETAMINOPHEN
  16. ZYRTEC [Concomitant]
     Active Substance: CETIRIZINE HYDROCHLORIDE

REACTIONS (3)
  - Hallucinations, mixed [None]
  - Paranoia [None]
  - Bipolar disorder [None]

NARRATIVE: CASE EVENT DATE: 20240611
